FAERS Safety Report 8142689-X (Version None)
Quarter: 2012Q1

REPORT INFORMATION
  Report Type: 
  Country: None (occurrence: None)
  Receive Date: 20120216
  Receipt Date: 20120206
  Transmission Date: 20120608
  Serious: Yes (Hospitalization, Other)
  Sender: FDA-Public Use
  Company Number: US-BAXTER-2012BH001373

PATIENT
  Age: 46 Year
  Sex: Female

DRUGS (1)
  1. DIANEAL [Suspect]
     Indication: PERITONEAL DIALYSIS
     Route: 033

REACTIONS (5)
  - CORONARY ARTERY DISEASE [None]
  - GANGRENE [None]
  - PNEUMONIA BACTERIAL [None]
  - LOCALISED INFECTION [None]
  - PERIPHERAL VASCULAR DISORDER [None]
